FAERS Safety Report 6038187-X (Version None)
Quarter: 2009Q1

REPORT INFORMATION
  Report Type: 
  Country: None (occurrence: None)
  Receive Date: 20090115
  Receipt Date: 20090105
  Transmission Date: 20090719
  Serious: Yes (Other)
  Sender: FDA-Public Use
  Company Number: PHEH2005US06940

PATIENT
  Sex: Female

DRUGS (4)
  1. COMBIPATCH [Suspect]
     Indication: HORMONE REPLACEMENT THERAPY
     Route: 062
     Dates: start: 20020101, end: 20030101
  2. PREMPRO [Suspect]
     Indication: HORMONE REPLACEMENT THERAPY
     Dates: start: 19970101, end: 20000101
  3. BONIVA [Concomitant]
  4. FEMARA [Concomitant]
     Dosage: UNK
     Dates: start: 20040101

REACTIONS (6)
  - BIOPSY [None]
  - BREAST CANCER [None]
  - CHEMOTHERAPY [None]
  - MAMMOGRAM ABNORMAL [None]
  - OSTEOPOROSIS [None]
  - RADIOTHERAPY [None]
